FAERS Safety Report 7794679-4 (Version None)
Quarter: 2011Q4

REPORT INFORMATION
  Report Type: 
  Country: None (occurrence: None)
  Receive Date: 20111004
  Receipt Date: 20110928
  Transmission Date: 20120403
  Serious: Yes (Death, Other)
  Sender: FDA-Public Use
  Company Number: JP-PFIZER INC-2011203572

PATIENT
  Sex: Female
  Weight: 56.4 kg

DRUGS (18)
  1. VFEND [Suspect]
     Dosage: 100 MG, 2X/DAY
     Dates: start: 20110829, end: 20110901
  2. ALPROSTADIL [Concomitant]
     Dosage: 500 UG, 1X/DAY
     Dates: start: 20110822, end: 20110824
  3. VANCOMYCIN [Suspect]
     Dosage: 750 MG, 2X/DAY
     Route: 041
     Dates: start: 20110830, end: 20110902
  4. OMEPRAZOLE [Concomitant]
     Dosage: 20 MG, 2X/DAY
     Route: 041
     Dates: start: 20110818, end: 20110907
  5. ANTITHROMBIN III HUMAN [Concomitant]
     Dosage: UNK
     Dates: start: 20110818, end: 20110822
  6. VFEND [Suspect]
     Dosage: 300 MG, 2X/DAY
     Route: 042
     Dates: start: 20110828, end: 20110828
  7. PROPOFOL [Concomitant]
     Dosage: UNK
     Dates: start: 20110818, end: 20110905
  8. IMMUNOGLOBULIN HUMAN NORMAL [Concomitant]
     Dosage: 5 G, 1X/DAY
     Route: 041
     Dates: start: 20110818, end: 20110820
  9. VANCOMYCIN [Suspect]
     Dosage: 1000 MG, 2X/DAY
     Dates: start: 20110824, end: 20110829
  10. VFEND [Suspect]
     Dosage: 100 MG, 2X/DAY
     Route: 048
     Dates: start: 20110902, end: 20110907
  11. FOY [Concomitant]
     Dosage: 2000 MG, 1X/DAY
     Route: 041
     Dates: start: 20110819, end: 20110901
  12. HEPARIN SODIUM [Concomitant]
     Dosage: 5000 UNIT/DAY
     Dates: start: 20110827, end: 20110907
  13. LEVOFLOXACIN [Suspect]
     Dosage: 500 MG, 1X/DAY
     Route: 041
     Dates: start: 20110828, end: 20110905
  14. MEROPENEM [Concomitant]
     Dosage: 0.5 G, 3X/DAY
     Route: 041
     Dates: start: 20110817, end: 20110827
  15. SANDOSTATIN [Concomitant]
     Dosage: 200 UG, 2X/DAY
     Route: 058
     Dates: start: 20110818, end: 20110821
  16. ANTITHROMBIN III HUMAN [Concomitant]
     Dosage: UNK
     Route: 041
     Dates: start: 20110902, end: 20110907
  17. HEPARIN SODIUM [Concomitant]
     Dosage: 10000 UNIT/DAY
     Dates: start: 20110818, end: 20110826
  18. FENTANYL [Concomitant]
     Dosage: 0.5 MG, 1X/DAY
     Dates: start: 20110819, end: 20110907

REACTIONS (3)
  - RENAL IMPAIRMENT [None]
  - HEPATIC FUNCTION ABNORMAL [None]
  - HEPATIC NEOPLASM MALIGNANT [None]
